FAERS Safety Report 6069537-6 (Version None)
Quarter: 2009Q1

REPORT INFORMATION
  Report Type: 
  Country: None (occurrence: None)
  Receive Date: 20090206
  Receipt Date: 20090204
  Transmission Date: 20090719
  Serious: Yes (Hospitalization, Other)
  Sender: FDA-Public Use
  Company Number: JP-B.I. PHARMACEUTICALS,INC./RIDGEFIELD-2008-BP-16197NB

PATIENT
  Sex: Male
  Weight: 48.6 kg

DRUGS (4)
  1. SPIRIVA [Suspect]
     Indication: EMPHYSEMA
     Dosage: 18MCG
     Route: 055
     Dates: start: 20070426, end: 20080131
  2. KIPRES [Concomitant]
     Indication: ASTHMA
     Dosage: 10MG
     Route: 048
     Dates: start: 20050426, end: 20080131
  3. MUCOSOLVAN L [Concomitant]
     Indication: ASTHMA
     Dosage: 45MG
     Route: 048
     Dates: start: 20041101, end: 20080131
  4. UNIPHYL LA [Concomitant]
     Indication: ASTHMA
     Dosage: 400MG
     Route: 048
     Dates: start: 20041101, end: 20080131

REACTIONS (2)
  - ASTHMA [None]
  - LUNG NEOPLASM MALIGNANT [None]
